FAERS Safety Report 7964541-2 (Version None)
Quarter: 2011Q4

REPORT INFORMATION
  Report Type: 
  Country: None (occurrence: None)
  Receive Date: 20111208
  Receipt Date: 20111202
  Transmission Date: 20120403
  Serious: Yes (Death, Life-Threatening)
  Sender: FDA-Public Use
  Company Number: FR-SANOFI-AVENTIS-2011SA079379

PATIENT
  Age: 84 Year
  Sex: Male

DRUGS (2)
  1. PLAVIX [Suspect]
     Route: 048
     Dates: start: 20110323, end: 20110617
  2. PREVISCAN [Interacting]
     Indication: ATRIAL FIBRILLATION
     Route: 048
     Dates: start: 20110201, end: 20110617

REACTIONS (5)
  - ANAEMIA [None]
  - SHOCK HAEMORRHAGIC [None]
  - INTERNATIONAL NORMALISED RATIO INCREASED [None]
  - MELAENA [None]
  - DRUG INTERACTION [None]
